FAERS Safety Report 4473910-7 (Version None)
Quarter: 2004Q4

REPORT INFORMATION
  Report Type: 
  Country: None (occurrence: None)
  Receive Date: 20041008
  Receipt Date: 20040920
  Transmission Date: 20050328
  Serious: Yes (Other)
  Sender: FDA-Public Use
  Company Number: USA040978993

PATIENT
  Age: 85 Year
  Sex: Female

DRUGS (1)
  1. EVISTA [Suspect]

REACTIONS (1)
  - CEREBROVASCULAR ACCIDENT [None]
